FAERS Safety Report 19565107 (Version 1)
Quarter: 2021Q3

REPORT INFORMATION
  Report Type: Spontaneous
  Country: AU (occurrence: AU)
  Receive Date: 20210716
  Receipt Date: 20210716
  Transmission Date: 20211014
  Serious: Yes (Death, Life-Threatening, Hospitalization, Other)
  Sender: FDA-Public Use
  Company Number: AU-STRIDES ARCOLAB LIMITED-2021SP024901

PATIENT
  Age: 72 Year
  Sex: Male

DRUGS (3)
  1. METHYLPREDNISOLONE. [Suspect]
     Active Substance: METHYLPREDNISOLONE
     Indication: TRANSPLANT REJECTION
     Dosage: 1000 MILLIGRAM STARTED IN OCT 2019
     Route: 042
     Dates: start: 201910
  2. MYCOPHENOLATE MOFETIL. [Suspect]
     Active Substance: MYCOPHENOLATE MOFETIL
     Indication: IMMUNOSUPPRESSANT DRUG THERAPY
     Dosage: UNK,STARTED IN AUG 2019
     Route: 065
     Dates: start: 201908
  3. TACROLIMUS. [Suspect]
     Active Substance: TACROLIMUS
     Indication: IMMUNOSUPPRESSANT DRUG THERAPY
     Dosage: UNK,STARTED IN AUG 2019
     Route: 065
     Dates: start: 201908

REACTIONS (17)
  - Embolism [Fatal]
  - Infarction [Fatal]
  - Bacterial colitis [Fatal]
  - Respiratory failure [Fatal]
  - Pseudopolyposis [Fatal]
  - Neutropenic sepsis [Fatal]
  - Pseudomonas infection [Fatal]
  - Enterococcal infection [Fatal]
  - Malacoplakia gastrointestinal [Fatal]
  - Escherichia bacteraemia [Fatal]
  - Shock [Fatal]
  - Leukopenia [Fatal]
  - Multi-organ disorder [Fatal]
  - Escherichia sepsis [Fatal]
  - Aspergillus infection [Fatal]
  - Septic shock [Fatal]
  - Transplant rejection [Recovered/Resolved]

NARRATIVE: CASE EVENT DATE: 2019
